FAERS Safety Report 12282272 (Version 1)
Quarter: 2016Q2

REPORT INFORMATION
  Report Type: Spontaneous
  Country: US (occurrence: US)
  Receive Date: 20160419
  Receipt Date: 20160419
  Transmission Date: 20160815
  Serious: Yes (Other)
  Sender: FDA-Public Use
  Company Number: ADR-2014-01094

PATIENT
  Age: 49 Year
  Sex: Female

DRUGS (1)
  1. BACLOFEN. [Suspect]
     Active Substance: BACLOFEN
     Route: 037

REACTIONS (9)
  - No therapeutic response [Unknown]
  - Underdose [Unknown]
  - Muscle spasticity [Unknown]
  - Paraesthesia [Unknown]
  - Incision site complication [Unknown]
  - Musculoskeletal stiffness [Unknown]
  - Medical device site swelling [Unknown]
  - Purulence [Unknown]
  - Medical device site pain [Not Recovered/Not Resolved]

NARRATIVE: CASE EVENT DATE: 201105
